FAERS Safety Report 9219884 (Version 1)
Quarter: 2013Q2

REPORT INFORMATION
  Report Type: Spontaneous
  Country: FR (occurrence: FR)
  Receive Date: 20130409
  Receipt Date: 20130409
  Transmission Date: 20140414
  Serious: Yes (Life-Threatening)
  Sender: FDA-Public Use
  Company Number: FR-CUBIST PHARMACEUTICAL, INC.-2013CBST000306

PATIENT
  Sex: Female
  Weight: 60 kg

DRUGS (3)
  1. CUBICIN [Suspect]
     Indication: STAPHYLOCOCCAL BACTERAEMIA
     Dosage: 12 MG/KG, QD
     Route: 042
     Dates: start: 201303
  2. RIFAMPICIN [Concomitant]
     Indication: PRODUCT USED FOR UNKNOWN INDICATION
     Dosage: UNK UNK, UNK
     Dates: start: 201303
  3. GENTAMICIN [Concomitant]
     Indication: PRODUCT USED FOR UNKNOWN INDICATION
     Dosage: UNK

REACTIONS (2)
  - Antimicrobial susceptibility test resistant [Not Recovered/Not Resolved]
  - Drug ineffective [Unknown]
